FAERS Safety Report 21984527 (Version 1)
Quarter: 2023Q1

REPORT INFORMATION
  Report Type: Spontaneous
  Country: GB (occurrence: GB)
  Receive Date: 20230213
  Receipt Date: 20230213
  Transmission Date: 20230417
  Serious: Yes (Other)
  Sender: FDA-Public Use
  Company Number: GB-SAMSUNG BIOEPIS-SB-2023-03856

PATIENT
  Age: 57 Year
  Sex: Female

DRUGS (8)
  1. ETANERCEPT [Suspect]
     Active Substance: ETANERCEPT
     Indication: Polyarthritis
     Dosage: UNKNOWN
     Route: 065
  2. ADALIMUMAB [Suspect]
     Active Substance: ADALIMUMAB
     Indication: Polyarthritis
     Dosage: UNKNOWN
     Route: 065
  3. METHOTREXATE [Concomitant]
     Active Substance: METHOTREXATE
     Indication: Polyarthritis
     Dosage: UNKNOWN
     Route: 065
  4. CELECOXIB [Concomitant]
     Active Substance: CELECOXIB
     Indication: Polyarthritis
     Dosage: UNKNOWN
     Route: 065
  5. TRAMADOL [Concomitant]
     Active Substance: TRAMADOL
     Indication: Polyarthritis
     Dosage: UNKNOWN
     Route: 065
  6. HYDROXYCHLOROQUINE [Concomitant]
     Active Substance: HYDROXYCHLOROQUINE
     Indication: Polyarthritis
     Dosage: UNKNOWN
     Route: 065
  7. RITUXIMAB [Concomitant]
     Active Substance: RITUXIMAB
     Indication: Polyarthritis
     Dosage: UNKNOWN
     Route: 065
  8. PREDNISOLONE [Concomitant]
     Active Substance: PREDNISOLONE
     Indication: Polyarthritis
     Route: 065

REACTIONS (5)
  - Ulcerative keratitis [Recovering/Resolving]
  - Eosinophilic cellulitis [Unknown]
  - Tuberculin test positive [Unknown]
  - Synovitis [Unknown]
  - Product use in unapproved indication [Unknown]
